FAERS Safety Report 18488475 (Version 3)
Quarter: 2020Q4

REPORT INFORMATION
  Report Type: Spontaneous
  Country: GB (occurrence: GB)
  Receive Date: 20201111
  Receipt Date: 20201215
  Transmission Date: 20210114
  Serious: Yes (Other)
  Sender: FDA-Public Use
  Company Number: GB-B.I. PHARMACEUTICALS,INC./RIDGEFIELD-2020-BI-059813

PATIENT
  Age: 62 Year

DRUGS (2)
  1. JARDIANCE [Suspect]
     Active Substance: EMPAGLIFLOZIN
     Indication: DIABETES MELLITUS
     Dosage: DOSE INCREASED ON 17 SEP 2020. NO DETAILS OF WHAT DOSE IT HAD BEEN INCREASED TO.  THE PATIENT FEELS
     Route: 065
     Dates: start: 201612
  2. JARDIANCE [Suspect]
     Active Substance: EMPAGLIFLOZIN
     Route: 065
     Dates: start: 20200917

REACTIONS (4)
  - Heart rate increased [Unknown]
  - Diabetes mellitus inadequate control [Unknown]
  - Atrial fibrillation [Recovered/Resolved]
  - Drug ineffective [Unknown]
